FAERS Safety Report 9095644 (Version 3)
Quarter: 2013Q1

REPORT INFORMATION
  Report Type: Spontaneous
  Country: DE (occurrence: CA)
  Receive Date: 20130219
  Receipt Date: 20130321
  Transmission Date: 20140127
  Serious: Yes (Death, Hospitalization)
  Sender: FDA-Public Use
  Company Number: CA-FRI-1000042705

PATIENT
  Age: 77 Year
  Sex: Female
  Weight: 136 kg

DRUGS (12)
  1. ROFLUMILAST [Suspect]
     Dosage: 500 MCG
     Route: 048
     Dates: start: 20120411, end: 20130205
  2. FUROSEMIDE [Concomitant]
     Dosage: 240 MG
  3. CIPRALEX [Concomitant]
     Dosage: 10 MG
  4. ELTROXIN [Concomitant]
     Dosage: 150 MG
  5. GABAPENTIN [Concomitant]
     Dosage: 800 MG
  6. AVAPRO [Concomitant]
     Dosage: 75 MG
  7. PANTOPRAZOLE [Concomitant]
     Dosage: 40 MG
  8. ZAROXOLYN [Concomitant]
     Dosage: 2.5 MG
  9. ZYLOPRIM [Concomitant]
     Dosage: 100 MG
  10. PRADAX [Concomitant]
     Dosage: 220 MG
  11. SPIRONOLACTONE [Concomitant]
     Dosage: 25 MG
  12. METFORMIN [Concomitant]
     Dosage: 1000 MG

REACTIONS (2)
  - Pneumonia [Fatal]
  - Renal failure [Fatal]
